FAERS Safety Report 7428716-3 (Version None)
Quarter: 2011Q2

REPORT INFORMATION
  Report Type: 
  Country: None (occurrence: None)
  Receive Date: 20110415
  Receipt Date: 20110415
  Transmission Date: 20111010
  Serious: No
  Sender: FDA-Public Use
  Company Number: None

PATIENT
  Age: 53 Year
  Sex: Male
  Weight: 86.1834 kg

DRUGS (1)
  1. SULFA METH/ TMP DS TAB ANNEAL PHARMACE [Suspect]
     Indication: PROSTATE INFECTION
     Dosage: TWO TABS DAILY
     Dates: start: 20110317, end: 20110331

REACTIONS (5)
  - ABDOMINAL DISCOMFORT [None]
  - SWELLING FACE [None]
  - PRURITUS [None]
  - CHILLS [None]
  - RASH [None]
